FAERS Safety Report 13186365 (Version 4)
Quarter: 2017Q1

REPORT INFORMATION
  Report Type: Spontaneous
  Country: GB (occurrence: GB)
  Receive Date: 20170204
  Receipt Date: 20170329
  Transmission Date: 20170428
  Serious: Yes (Hospitalization)
  Sender: FDA-Public Use
  Company Number: GB-009507513-1701GBR013868

PATIENT
  Age: 72 Year
  Sex: Female

DRUGS (17)
  1. ACYCLOVIR. [Concomitant]
     Active Substance: ACYCLOVIR
     Indication: INFECTION PROPHYLAXIS
     Dosage: 400 MG, 2 IN 1 D
     Route: 048
     Dates: start: 20160803
  2. ERYTHROPOIETIC FACTOR [Concomitant]
     Indication: ANAEMIA
     Dosage: 3000 IU, 1 IN 1 WK
     Route: 058
     Dates: start: 20160928
  3. METOCLOPRAMIDE. [Concomitant]
     Active Substance: METOCLOPRAMIDE
     Indication: GASTROOESOPHAGEAL REFLUX DISEASE
     Dosage: 10 MG, 4 IN 1 D
     Route: 048
     Dates: start: 20160803
  4. OXYCODONE [Concomitant]
     Active Substance: OXYCODONE
     Indication: NON-CARDIAC CHEST PAIN
     Dosage: UNK
     Route: 065
  5. DEXAMETHASONE. [Suspect]
     Active Substance: DEXAMETHASONE
     Indication: PLASMA CELL MYELOMA
     Dosage: 40 MG, 4 IN 28 DAYS
     Route: 048
     Dates: start: 20160803, end: 20170111
  6. REVLIMID [Suspect]
     Active Substance: LENALIDOMIDE
     Indication: PLASMA CELL MYELOMA
     Dosage: 10 MG, 21 IN 28 DAYS
     Route: 048
     Dates: start: 20160803, end: 20170110
  7. MOVICOL [Concomitant]
     Active Substance: POLYETHYLENE GLYCOL 3350\POTASSIUM CHLORIDE\SODIUM BICARBONATE\SODIUM CHLORIDE
     Indication: CONSTIPATION
     Dosage: UNK, 2 IN 1 D
     Route: 048
     Dates: start: 20160921
  8. NITROFURANTOIN. [Concomitant]
     Active Substance: NITROFURANTOIN
     Indication: URINARY TRACT INFECTION
     Dosage: UNK
  9. ALLOPURINOL. [Concomitant]
     Active Substance: ALLOPURINOL
     Indication: PROPHYLAXIS
     Dosage: 300 MG, 1 IN 1 D
     Route: 048
     Dates: start: 20160803
  10. OXYCODONE [Concomitant]
     Active Substance: OXYCODONE
     Indication: ARTHRALGIA
     Dosage: 10 MG, 2 IN 1 D
     Route: 048
     Dates: start: 20160706
  11. OXYCONTIN [Concomitant]
     Active Substance: OXYCODONE HYDROCHLORIDE
     Indication: CHEST PAIN
     Dosage: UNK
     Route: 065
  12. ACETAMINOPHEN. [Concomitant]
     Active Substance: ACETAMINOPHEN
     Indication: ARTHRALGIA
     Dosage: UNK
     Route: 065
  13. GELCLAIR [Concomitant]
     Indication: ORAL CANDIDIASIS
     Dosage: UNK, 4 IN 1 D
     Route: 048
     Dates: start: 20160907
  14. OMEPRAZOLE. [Concomitant]
     Active Substance: OMEPRAZOLE
     Indication: PROPHYLAXIS AGAINST GASTROINTESTINAL ULCER
     Dosage: 20 MG, 1 IN 1 D
     Route: 065
     Dates: start: 20160803
  15. OXYCONTIN [Concomitant]
     Active Substance: OXYCODONE HYDROCHLORIDE
     Indication: ARTHRALGIA
     Dosage: 30 MG, 2 IN 1 D
     Route: 065
     Dates: start: 20160713
  16. ACETAMINOPHEN. [Concomitant]
     Active Substance: ACETAMINOPHEN
     Indication: NON-CARDIAC CHEST PAIN
     Dosage: 1000 MG, 4 IN 1 D
     Route: 048
     Dates: start: 20160622
  17. NITROFURANTOIN. [Concomitant]
     Active Substance: NITROFURANTOIN
     Indication: ARTHRALGIA
     Dosage: 100 MG, QID
     Route: 048
     Dates: start: 20170102

REACTIONS (1)
  - Acute coronary syndrome [Recovered/Resolved with Sequelae]

NARRATIVE: CASE EVENT DATE: 20170111
